FAERS Safety Report 6860436-6 (Version None)
Quarter: 2010Q3

REPORT INFORMATION
  Report Type: 
  Country: None (occurrence: None)
  Receive Date: 20100719
  Receipt Date: 20100719
  Transmission Date: 20110219
  Serious: Yes (Hospitalization)
  Sender: FDA-Public Use
  Company Number: None

PATIENT
  Age: 45 Year
  Sex: Female
  Weight: 95.2554 kg

DRUGS (2)
  1. YAZ [Suspect]
     Indication: MENOPAUSE
     Dosage: 1 A DAY EVERYDAY PO
     Route: 048
     Dates: start: 20080101, end: 20080829
  2. YAZ [Suspect]
     Indication: MENSTRUAL CYCLE MANAGEMENT
     Dosage: 1 A DAY EVERYDAY PO
     Route: 048
     Dates: start: 20080101, end: 20080829

REACTIONS (5)
  - CHOLECYSTECTOMY [None]
  - GASTROINTESTINAL DISORDER [None]
  - HEADACHE [None]
  - HEPATIC ENZYME INCREASED [None]
  - PANCREATIC ENZYMES INCREASED [None]
